FAERS Safety Report 9863134 (Version 1)
Quarter: 2014Q1

REPORT INFORMATION
  Report Type: Report from Study
  Country: US (occurrence: US)
  Receive Date: 20140203
  Receipt Date: 20140203
  Transmission Date: 20141002
  Serious: Yes (Hospitalization)
  Sender: FDA-Public Use
  Company Number: US-ACTELION-A-NJ2014-94171

PATIENT
  Age: 52 Year
  Sex: Female

DRUGS (3)
  1. VELETRI [Suspect]
     Indication: PULMONARY ARTERIAL HYPERTENSION
     Dosage: 40.57 NG/KG, PER MIN
     Route: 042
  2. LETAIRIS [Concomitant]
  3. COUMADIN [Concomitant]
     Dosage: UNK

REACTIONS (7)
  - Catheter removal [Unknown]
  - Device related infection [Unknown]
  - Pyrexia [Unknown]
  - Flushing [Unknown]
  - Pain in extremity [Unknown]
  - Pain in jaw [Unknown]
  - Diarrhoea [Unknown]
